FAERS Safety Report 7024488-5 (Version None)
Quarter: 2010Q4

REPORT INFORMATION
  Report Type: 
  Country: None (occurrence: None)
  Receive Date: 20101001
  Receipt Date: 20100924
  Transmission Date: 20110411
  Serious: Yes (Hospitalization)
  Sender: FDA-Public Use
  Company Number: A0836479A

PATIENT
  Age: 42 Year
  Sex: Female
  Weight: 109.1 kg

DRUGS (2)
  1. AVANDIA [Suspect]
     Dosage: 4MG TWICE PER DAY
     Route: 065
     Dates: start: 20050101, end: 20080110
  2. AVANDAMET [Suspect]
     Route: 065
     Dates: start: 20060208, end: 20070810

REACTIONS (10)
  - ANGIOPATHY [None]
  - CARDIAC DISORDER [None]
  - CARDIAC FAILURE CONGESTIVE [None]
  - CHEST PAIN [None]
  - CORONARY ARTERY DISEASE [None]
  - DYSPNOEA [None]
  - FATIGUE [None]
  - HYPOAESTHESIA [None]
  - MYOCARDIAL INFARCTION [None]
  - VISION BLURRED [None]
